FAERS Safety Report 10665601 (Version 2)
Quarter: 2014Q4

REPORT INFORMATION
  Report Type: Spontaneous
  Country: JP (occurrence: JP)
  Receive Date: 20141219
  Receipt Date: 20141231
  Transmission Date: 20150529
  Serious: Yes (Death)
  Sender: FDA-Public Use
  Company Number: JP-009507513-1412JPN007781

PATIENT

DRUGS (1)
  1. STROMECTOL [Suspect]
     Active Substance: IVERMECTIN
     Dosage: THE FIRST ADMINISTRATION, DAILY DOSAGE UNKNOWN
     Route: 048

REACTIONS (1)
  - Death [Fatal]
